FAERS Safety Report 25602528 (Version 3)
Quarter: 2025Q3

REPORT INFORMATION
  Report Type: Spontaneous
  Country: US (occurrence: US)
  Receive Date: 20250724
  Receipt Date: 20250831
  Transmission Date: 20251020
  Serious: Yes (Other)
  Sender: JOHNSON AND JOHNSON
  Company Number: US-JNJFOC-20250727117

PATIENT
  Sex: Male

DRUGS (1)
  1. CONCERTA [Suspect]
     Active Substance: METHYLPHENIDATE HYDROCHLORIDE
     Indication: Product used for unknown indication

REACTIONS (10)
  - Cerebral disorder [Unknown]
  - Cardiac disorder [Unknown]
  - Wrong dosage formulation [Unknown]
  - Product quality issue [Unknown]
  - Pain [Unknown]
  - Product lot number issue [Unknown]
  - Drug ineffective [Unknown]
  - Tic [Unknown]
  - Headache [Unknown]
  - Decreased interest [Unknown]
